FAERS Safety Report 7753453-5 (Version None)
Quarter: 2011Q3

REPORT INFORMATION
  Report Type: 
  Country: None (occurrence: None)
  Receive Date: 20110915
  Receipt Date: 20110902
  Transmission Date: 20111222
  Serious: Yes (Hospitalization, Other)
  Sender: FDA-Public Use
  Company Number: US-ELI_LILLY_AND_COMPANY-US201107006152

PATIENT
  Sex: Female

DRUGS (18)
  1. FORTEO [Suspect]
     Dosage: 20 UG, QD
     Route: 065
  2. FOSAMAX [Concomitant]
  3. ALLEGRA [Concomitant]
  4. ASCORBIC ACID [Concomitant]
  5. VITAMIN B [Concomitant]
  6. VITAMIN D [Concomitant]
  7. FORTEO [Suspect]
     Dosage: 20 UG, QD
  8. CALCIUM WITH VITAMIN D [Concomitant]
  9. TOPROL-XL [Concomitant]
  10. SYNTHROID [Concomitant]
  11. SINGULAIR [Concomitant]
  12. ASPIRIN [Concomitant]
  13. LIPITOR [Concomitant]
  14. PLAVIX [Concomitant]
  15. NORVASC [Concomitant]
  16. FORTEO [Suspect]
     Indication: OSTEOPOROSIS
     Dosage: 20 UG, QD
     Route: 065
     Dates: start: 20091201
  17. FLONASE [Concomitant]
  18. MULTI-VITAMIN [Concomitant]

REACTIONS (4)
  - OSTEONECROSIS OF JAW [None]
  - PATELLA FRACTURE [None]
  - FALL [None]
  - OSTEOARTHRITIS [None]
